FAERS Safety Report 11793748 (Version 1)
Quarter: 2015Q4

REPORT INFORMATION
  Report Type: Spontaneous
  Country: FR (occurrence: FR)
  Receive Date: 20151202
  Receipt Date: 20151202
  Transmission Date: 20160305
  Serious: Yes (Hospitalization, Other)
  Sender: FDA-Public Use
  Company Number: FR-PFIZER INC-2015402611

PATIENT
  Age: 16 Year
  Sex: Male

DRUGS (17)
  1. UROMITEXAN [Suspect]
     Active Substance: MESNA
     Dosage: SECOND LINE TREATMENT
     Route: 041
     Dates: start: 20131114, end: 20131116
  2. COSMEGEN [Suspect]
     Active Substance: DACTINOMYCIN
     Dosage: THIRD LINE TREATMENT
     Route: 041
     Dates: start: 20131206, end: 20140415
  3. VINCRISTINE HOSPIRA [Suspect]
     Active Substance: VINCRISTINE
     Dosage: THIRD LINE TREATMENT
     Route: 041
     Dates: start: 20131206, end: 20140415
  4. ENDOXAN /00021101/ [Suspect]
     Active Substance: CYCLOPHOSPHAMIDE
     Indication: EWING^S SARCOMA
     Dosage: THIRD LINE TREATMENT
     Route: 041
     Dates: start: 20131206, end: 20140415
  5. UROMITEXAN [Suspect]
     Active Substance: MESNA
     Dosage: FOURTH LINE TREATMENT
     Route: 041
     Dates: start: 20140512, end: 20140612
  6. VINCRISTINE HOSPIRA [Suspect]
     Active Substance: VINCRISTINE
     Dosage: FOURTH LINE TREATMENT
     Route: 041
     Dates: start: 20140512, end: 20140612
  7. COSMEGEN [Suspect]
     Active Substance: DACTINOMYCIN
     Dosage: FOURTH LINE TREATMENT
     Route: 041
     Dates: start: 20140512, end: 20140612
  8. IFOSFAMIDE. [Suspect]
     Active Substance: IFOSFAMIDE
     Dosage: SECOND LINE TREATMENT
     Route: 041
     Dates: start: 20131114, end: 20131116
  9. VINCRISTINE HOSPIRA [Suspect]
     Active Substance: VINCRISTINE
     Indication: EWING^S SARCOMA
     Dosage: 2 MG, FIRST LINE TREATMENT
     Route: 041
     Dates: start: 20130611, end: 20131004
  10. ENDOXAN /00021101/ [Suspect]
     Active Substance: CYCLOPHOSPHAMIDE
     Dosage: FOURTH LINE TREATMENT
     Dates: start: 20140512, end: 20140612
  11. COSMEGEN [Suspect]
     Active Substance: DACTINOMYCIN
     Indication: EWING^S SARCOMA
     Dosage: SECOND LINE TREATMENT
     Route: 041
     Dates: start: 20131114, end: 20131116
  12. ETOPOSIDE MYLAN [Suspect]
     Active Substance: ETOPOSIDE
     Indication: EWING^S SARCOMA
     Dosage: 210 MG, FIRST LINE TREATMENT
     Route: 041
     Dates: start: 20130611, end: 20131004
  13. ADRIBLASTINE [Suspect]
     Active Substance: DOXORUBICIN
     Indication: EWING^S SARCOMA
     Dosage: 350 MG/M2 (28 MG, FIRST LINE TREATMENT )
     Route: 041
     Dates: start: 20130611, end: 20131004
  14. IFOSFAMIDE. [Suspect]
     Active Substance: IFOSFAMIDE
     Indication: EWING^S SARCOMA
     Dosage: 4200 MG, FIRST LINE TREATMENT
     Route: 041
     Dates: start: 20130611, end: 20131004
  15. VINCRISTINE HOSPIRA [Suspect]
     Active Substance: VINCRISTINE
     Dosage: SECOND LINE TREATMENT
     Route: 041
     Dates: start: 20131114, end: 20131116
  16. UROMITEXAN [Suspect]
     Active Substance: MESNA
     Indication: EWING^S SARCOMA
     Dosage: 5040 MG, FIRST LINE TREATMENT
     Route: 041
     Dates: start: 20130611, end: 20131004
  17. UROMITEXAN [Suspect]
     Active Substance: MESNA
     Dosage: THIRD LINE TREATMENT
     Route: 041
     Dates: start: 20131206, end: 20140415

REACTIONS (9)
  - Nervousness [Unknown]
  - Dysaesthesia [Unknown]
  - Confusional state [Unknown]
  - Blood phosphorus decreased [Unknown]
  - Vomiting [Unknown]
  - Headache [Unknown]
  - Dysarthria [Unknown]
  - Hypoaesthesia [Unknown]
  - Renal tubular disorder [Recovered/Resolved with Sequelae]

NARRATIVE: CASE EVENT DATE: 201507
